FAERS Safety Report 13122333 (Version 1)
Quarter: 2017Q1

REPORT INFORMATION
  Report Type: Spontaneous
  Country: US (occurrence: US)
  Receive Date: 20170117
  Receipt Date: 20170117
  Transmission Date: 20170428
  Serious: Yes (Other)
  Sender: FDA-Public Use
  Company Number: US-MYLANLABS-2017M1002099

PATIENT

DRUGS (4)
  1. ONDANSETRON [Suspect]
     Active Substance: ONDANSETRON
     Indication: VOMITING
     Route: 065
  2. SERTRALINE [Suspect]
     Active Substance: SERTRALINE HYDROCHLORIDE
     Indication: DEPRESSION
     Dosage: DRUG WAS ADMINISTERED FOR FIRST TWO TRIMESTERS.
     Route: 065
  3. PROGESTERONE. [Suspect]
     Active Substance: PROGESTERONE
     Indication: PRODUCT USED FOR UNKNOWN INDICATION
     Dosage: INITIATED FROM WEEK 16
     Route: 065
  4. ESCITALOPRAM [Suspect]
     Active Substance: ESCITALOPRAM OXALATE
     Indication: DEPRESSION
     Dosage: WAS ADMINISTERED IN THE LAST TRIMESTER
     Route: 065

REACTIONS (2)
  - Human herpesvirus 6 infection [Unknown]
  - Maternal exposure during pregnancy [Unknown]
